FAERS Safety Report 5325808-X (Version None)
Quarter: 2007Q2

REPORT INFORMATION
  Report Type: 
  Country: None (occurrence: None)
  Receive Date: 20070510
  Receipt Date: 20070424
  Transmission Date: 20071010
  Serious: Yes (Other)
  Sender: FDA-Public Use
  Company Number: DSA_29849_2007

PATIENT
  Age: 78 Year
  Sex: Male

DRUGS (4)
  1. HERBESSER (HERBESSER) (NOT SPECIFIED) [Suspect]
     Dosage: 100 MG QD ORAL
     Route: 048
  2. BLOPRESS (CANDESARTAN CILEXETIL) (NOT SPECIFIED) [Suspect]
     Dosage: ORAL
     Route: 048
  3. KERLONE [Suspect]
     Dosage: ORAL
     Route: 048
  4. ADALAT [Suspect]
     Dosage: ORAL
     Route: 048

REACTIONS (4)
  - BRADYCARDIA [None]
  - NO THERAPEUTIC RESPONSE [None]
  - SHOCK [None]
  - TREATMENT NONCOMPLIANCE [None]
